FAERS Safety Report 4451278-X (Version None)
Quarter: 2004Q3

REPORT INFORMATION
  Report Type: 
  Country: None (occurrence: None)
  Receive Date: 20040915
  Receipt Date: 20040915
  Transmission Date: 20050211
  Serious: Yes (Hospitalization)
  Sender: FDA-Public Use
  Company Number: None

PATIENT
  Sex: Male
  Weight: 68 kg

DRUGS (9)
  1. GLEEVEC [Suspect]
     Indication: METASTATIC NEOPLASM
     Dosage: 300 MG   BIDX 4 DAYS/WK   ORAL
     Route: 048
     Dates: start: 20040907, end: 20040909
  2. LOVENOX [Concomitant]
  3. OXYCODONE HCL [Concomitant]
  4. OYCONTIN [Concomitant]
  5. NEURONTIN [Concomitant]
  6. AREDIA Q [Concomitant]
  7. ARANESP [Concomitant]
  8. MEGSTROL ACETATE [Concomitant]
  9. DYAZIDE [Concomitant]

REACTIONS (3)
  - DYSPNOEA [None]
  - PLEURAL EFFUSION [None]
  - TACHYCARDIA [None]
